FAERS Safety Report 4711262-5 (Version None)
Quarter: 2005Q3

REPORT INFORMATION
  Report Type: 
  Country: None (occurrence: None)
  Receive Date: 20050711
  Receipt Date: 20050629
  Transmission Date: 20060218
  Serious: Yes (Hospitalization, Other)
  Sender: FDA-Public Use
  Company Number: 05-06-1142

PATIENT
  Age: 77 Year
  Sex: Male

DRUGS (10)
  1. CLARITHROMYCIN [Suspect]
     Dosage: 500MG Q12H ORAL
     Route: 048
  2. NIFEDIPINE [Suspect]
     Dosage: SR60MG QD-BID ORAL
     Route: 048
  3. DOXAZOSIN [Concomitant]
  4. CAPTOPRIL [Concomitant]
  5. METFORMIN [Concomitant]
  6. GLIBENCLAMIDE [Concomitant]
  7. ASPIRIN [Concomitant]
  8. ALBUTEROL [Concomitant]
  9. BUDESONIDE [Concomitant]
  10. VALSARTAN [Concomitant]

REACTIONS (19)
  - ABDOMINAL PAIN [None]
  - ACIDOSIS [None]
  - BLOOD CREATININE INCREASED [None]
  - BLOOD PRESSURE SYSTOLIC INCREASED [None]
  - BODY TEMPERATURE DECREASED [None]
  - CARDIAC DISORDER [None]
  - DEPRESSED LEVEL OF CONSCIOUSNESS [None]
  - DRUG INTERACTION [None]
  - DYSPNOEA [None]
  - ELECTROLYTE IMBALANCE [None]
  - HAEMODIALYSIS [None]
  - HYPERKALAEMIA [None]
  - HYPOTENSION [None]
  - ORTHOPNOEA [None]
  - PRODUCTIVE COUGH [None]
  - SEPTIC SHOCK [None]
  - SHOCK [None]
  - URINE OUTPUT DECREASED [None]
  - VASCULAR RESISTANCE SYSTEMIC DECREASED [None]
